FAERS Safety Report 13043021 (Version 1)
Quarter: 2016Q4

REPORT INFORMATION
  Report Type: Spontaneous
  Country: KR (occurrence: KR)
  Receive Date: 20161219
  Receipt Date: 20161219
  Transmission Date: 20170207
  Serious: Yes (Other)
  Sender: FDA-Public Use
  Company Number: KR-PFIZER INC-2016578772

PATIENT
  Age: 52 Year
  Sex: Male

DRUGS (8)
  1. FOLINIC ACID [Suspect]
     Active Substance: LEUCOVORIN
     Indication: COLON CANCER
     Dosage: 200 MG/M2, CYCLIC (FOR 46 H EVERY 2 WEEKS)
  2. OXALIPLATIN. [Suspect]
     Active Substance: OXALIPLATIN
     Indication: METASTASES TO LIVER
  3. OXALIPLATIN. [Suspect]
     Active Substance: OXALIPLATIN
     Indication: COLON CANCER
     Dosage: 85 MG/M2, CYCLIC (FOR 46 H EVERY 2 WEEKS)
  4. FLUOROURACIL. [Suspect]
     Active Substance: FLUOROURACIL
     Indication: METASTASES TO LIVER
     Dosage: 2400 MG/M2, CYCLIC (CONTINUOUS INFUSION FOR 46 H EVERY 2 WEEKS)
     Route: 041
  5. CETUXIMAB [Suspect]
     Active Substance: CETUXIMAB
     Indication: METASTASES TO LIVER
  6. FOLINIC ACID [Suspect]
     Active Substance: LEUCOVORIN
     Indication: METASTASES TO LIVER
  7. FLUOROURACIL. [Suspect]
     Active Substance: FLUOROURACIL
     Indication: COLON CANCER
     Dosage: 400 MG/M2, CYCLIC (BOLUS ON DAYS 1; FOR 46 H EVERY 2 WEEKS)
     Route: 040
  8. CETUXIMAB [Suspect]
     Active Substance: CETUXIMAB
     Indication: COLON CANCER
     Dosage: 500 MG/M2, CYCLIC

REACTIONS (1)
  - Pneumatosis intestinalis [Recovered/Resolved]
